FAERS Safety Report 8818259 (Version 1)
Quarter: 2012Q4

REPORT INFORMATION
  Report Type: 
  Country: FR (occurrence: FR)
  Receive Date: 20121001
  Receipt Date: 20121001
  Transmission Date: 20130627
  Serious: Yes (Hospitalization)
  Sender: FDA-Public Use
  Company Number: FR-GLAXOSMITHKLINE-B0833255A

PATIENT
  Age: 66 Year
  Sex: Male

DRUGS (3)
  1. SORIATANE [Suspect]
     Indication: PSORIASIS
     Dosage: 30MG Per day
     Route: 048
     Dates: start: 200809, end: 20120824
  2. TAHOR [Suspect]
     Indication: HYPERCHOLESTEROLAEMIA
     Route: 048
     Dates: start: 201202
  3. BETASERC [Concomitant]

REACTIONS (1)
  - Hepatocellular injury [Not Recovered/Not Resolved]
